FAERS Safety Report 24825155 (Version 1)
Quarter: 2025Q1

REPORT INFORMATION
  Report Type: Spontaneous
  Country: US (occurrence: None)
  Receive Date: 20250108
  Receipt Date: 20250108
  Transmission Date: 20250408
  Serious: Yes (Hospitalization)
  Sender: FDA-CTU
  Company Number: None

PATIENT

DRUGS (1)
  1. PACLITAXEL [Suspect]
     Active Substance: PACLITAXEL

REACTIONS (5)
  - Throat irritation [None]
  - Cough [None]
  - Flushing [None]
  - Oxygen saturation decreased [None]
  - Altered state of consciousness [None]

NARRATIVE: CASE EVENT DATE: 20241001
